FAERS Safety Report 9496720 (Version 2)
Quarter: 2013Q3

REPORT INFORMATION
  Report Type: Report from Study
  Country: CA (occurrence: CA)
  Receive Date: 20130904
  Receipt Date: 20130923
  Transmission Date: 20140515
  Serious: Yes (Other)
  Sender: FDA-Public Use
  Company Number: CA-ROCHE-1269700

PATIENT
  Age: 74 Year
  Sex: Female

DRUGS (2)
  1. RANIBIZUMAB [Suspect]
     Indication: RETINAL VEIN OCCLUSION
     Route: 050
     Dates: start: 20130809, end: 20130827
  2. RANIBIZUMAB [Suspect]
     Route: 050
     Dates: start: 20130913

REACTIONS (4)
  - Hypertension [Not Recovered/Not Resolved]
  - Mood altered [Unknown]
  - Feeling abnormal [Unknown]
  - Aggression [Unknown]
